FAERS Safety Report 6019508-0 (Version None)
Quarter: 2008Q4

REPORT INFORMATION
  Report Type: 
  Country: None (occurrence: None)
  Receive Date: 20081224
  Receipt Date: 20081219
  Transmission Date: 20090506
  Serious: Yes (Hospitalization)
  Sender: FDA-Public Use
  Company Number: US-GILEAD-2008-0019495

PATIENT
  Sex: Female

DRUGS (9)
  1. LETAIRIS [Suspect]
     Indication: PULMONARY ARTERIAL HYPERTENSION
     Route: 048
     Dates: start: 20080206
  2. COUMADIN [Concomitant]
     Route: 048
  3. LASIX [Concomitant]
     Route: 048
  4. KLOR-CON [Concomitant]
  5. SIMVASTATIN [Concomitant]
     Route: 048
  6. PLAVIX [Concomitant]
     Route: 048
  7. NEXIUM [Concomitant]
     Route: 048
  8. CENTRUM [Concomitant]
     Route: 048
  9. MIRALAX [Concomitant]

REACTIONS (2)
  - CARDIAC FAILURE CONGESTIVE [None]
  - DYSPNOEA [None]
